FAERS Safety Report 7099558-6 (Version None)
Quarter: 2010Q4

REPORT INFORMATION
  Report Type: 
  Country: None (occurrence: None)
  Receive Date: 20101105
  Receipt Date: 20101025
  Transmission Date: 20110411
  Serious: Yes (Other)
  Sender: FDA-Public Use
  Company Number: 2010P1002209

PATIENT
  Age: 32 Year
  Sex: Female

DRUGS (2)
  1. ALLOPURINOL [Suspect]
     Indication: IRRITABLE BOWEL SYNDROME
     Dosage: 100 MG; PO
     Route: 048
  2. AZATHIOPRINE [Suspect]
     Indication: IRRITABLE BOWEL SYNDROME
     Dosage: 200 MG; PO
     Route: 048

REACTIONS (3)
  - LEUKOPENIA [None]
  - MENINGITIS VIRAL [None]
  - OPPORTUNISTIC INFECTION [None]
